FAERS Safety Report 7606045-2 (Version None)
Quarter: 2011Q3

REPORT INFORMATION
  Report Type: 
  Country: None (occurrence: None)
  Receive Date: 20110713
  Receipt Date: 20110711
  Transmission Date: 20111222
  Serious: Yes (Death)
  Sender: FDA-Public Use
  Company Number: PHFR2011GB02788

PATIENT
  Sex: Female

DRUGS (6)
  1. RASILEZ D [Suspect]
     Dosage: 300 MG, DAILY
     Route: 048
  2. DIGOXIN [Concomitant]
     Dosage: 125 UG, DAILY
     Route: 048
  3. MOXONIDINE [Concomitant]
     Dosage: 600 UG, DAILY
     Route: 048
  4. CITALOPRAM HYDROBROMIDE [Concomitant]
     Dosage: 60 MG, DAILY
     Route: 048
  5. ACETAMINOPHEN [Concomitant]
     Dosage: 1 G, DAILY
     Route: 048
  6. WARFARIN SODIUM [Concomitant]
     Dosage: UNK
     Route: 048

REACTIONS (1)
  - DEATH [None]
